FAERS Safety Report 7164550-X (Version None)
Quarter: 2010Q4

REPORT INFORMATION
  Report Type: 
  Country: None (occurrence: None)
  Receive Date: 20101123
  Receipt Date: 20100904
  Transmission Date: 20110411
  Serious: No
  Sender: FDA-Public Use
  Company Number: 018524

PATIENT
  Sex: Male

DRUGS (3)
  1. CIMZIA [Suspect]
     Indication: CROHN'S DISEASE
     Dosage: 400 MG 1X/28 DAYS SUBCUTANEOUS
     Route: 058
     Dates: start: 20090513
  2. POTASSIUM [Concomitant]
  3. VITAMIN D [Concomitant]

REACTIONS (1)
  - URINARY TRACT INFECTION [None]
